FAERS Safety Report 5110059-4 (Version None)
Quarter: 2006Q3

REPORT INFORMATION
  Report Type: 
  Country: None (occurrence: None)
  Receive Date: 20060918
  Receipt Date: 20060912
  Transmission Date: 20061208
  Serious: Yes (Other)
  Sender: FDA-Public Use
  Company Number: THQ2006A00853

PATIENT
  Age: 5 Decade
  Sex: Male

DRUGS (2)
  1. ACTOS [Suspect]
     Indication: DIABETES MELLITUS NON-INSULIN-DEPENDENT
  2. INSULIN [Concomitant]

REACTIONS (1)
  - HEPATIC CIRRHOSIS [None]
